FAERS Safety Report 7498470-8 (Version None)
Quarter: 2011Q2

REPORT INFORMATION
  Report Type: 
  Country: None (occurrence: None)
  Receive Date: 20110524
  Receipt Date: 20110428
  Transmission Date: 20111010
  Serious: Yes (Other)
  Sender: FDA-Public Use
  Company Number: US-BAYER-2011-016325

PATIENT
  Sex: Female
  Weight: 59.41 kg

DRUGS (7)
  1. YAZ [Suspect]
     Indication: PREMENSTRUAL SYNDROME
  2. YASMIN [Suspect]
     Indication: PREMENSTRUAL SYNDROME
  3. SYNTHROID [Concomitant]
     Dosage: UNK
     Dates: start: 20020101
  4. THYROID TAB [Concomitant]
     Dosage: UNK
     Dates: start: 20020101
  5. IBUPROFEN [Concomitant]
  6. YAZ [Suspect]
     Indication: OVARIAN CYST
     Dosage: 1 TAB / DAY
     Dates: start: 20030101, end: 20060101
  7. YASMIN [Suspect]
     Indication: OVARIAN CYST
     Dosage: 1 TAB / DAY
     Dates: start: 20030101, end: 20060101

REACTIONS (2)
  - CHOLECYSTITIS [None]
  - ABDOMINAL PAIN [None]
